FAERS Safety Report 6874578-2 (Version None)
Quarter: 2010Q3

REPORT INFORMATION
  Report Type: 
  Country: None (occurrence: None)
  Receive Date: 20100722
  Receipt Date: 20100709
  Transmission Date: 20110219
  Serious: Yes (Hospitalization)
  Sender: FDA-Public Use
  Company Number: 2010OCT000026

PATIENT
  Age: 56 Year
  Sex: Female
  Weight: 55 kg

DRUGS (2)
  1. DEPOCYT [Suspect]
     Indication: NON-HODGKIN'S LYMPHOMA
     Dosage: 50 MG;1X;INTH
     Route: 037
     Dates: start: 20100618, end: 20100618
  2. RITUXIMAB (RITUXIMAB) [Suspect]
     Indication: NON-HODGKIN'S LYMPHOMA
     Dosage: 580 MG;X1;IV
     Route: 042
     Dates: start: 20100616, end: 20100616

REACTIONS (2)
  - ABSCESS [None]
  - SIGMOIDITIS [None]
